FAERS Safety Report 6771267-X (Version None)
Quarter: 2010Q2

REPORT INFORMATION
  Report Type: 
  Country: None (occurrence: None)
  Receive Date: 20100616
  Receipt Date: 20100604
  Transmission Date: 20101027
  Serious: Yes (Life-Threatening, Other)
  Sender: FDA-Public Use
  Company Number: PHHY2010GB28482

PATIENT
  Sex: Female

DRUGS (14)
  1. FEMARA [Suspect]
     Indication: BREAST CANCER
     Dosage: UNK
     Route: 048
     Dates: start: 20100201, end: 20100514
  2. MST [Concomitant]
  3. DEXAMETHASONE [Concomitant]
     Indication: NAUSEA
     Dosage: UNK
  4. OMEPRAZOLE [Concomitant]
     Indication: GASTRIC DISORDER
     Dosage: UNK
     Dates: start: 20080101
  5. ANTIINFLAMMATORY [Concomitant]
  6. ACETAMINOPHEN AND CODEINE PHOSPHATE [Concomitant]
     Indication: PAIN
     Dosage: 8 X 30/50MG TABLETS DAILY
     Route: 048
     Dates: start: 20080101
  7. ORAMORPH SR [Concomitant]
     Indication: PAIN
     Dosage: UNK
     Route: 048
     Dates: start: 20080101
  8. ZOPICLONE [Concomitant]
     Indication: INSOMNIA
     Dosage: UNK
     Dates: start: 20090101
  9. LOPERAMIDE [Concomitant]
     Indication: DIARRHOEA
     Dosage: UNK
     Route: 048
     Dates: start: 20100301
  10. FOLIC ACID [Concomitant]
  11. DOTHIEPIN HYDROCHLORIDE [Concomitant]
     Indication: DEPRESSION
     Dosage: UNK
     Dates: start: 20080101
  12. QUININE [Concomitant]
     Indication: MUSCLE SPASMS
     Dosage: UNK
     Dates: start: 20070101
  13. CYCLIZINE [Concomitant]
     Indication: NAUSEA
     Dosage: UNK
  14. IBANDRONIC ACID [Concomitant]
     Indication: BONE DISORDER
     Dosage: UNK
     Dates: start: 20080101

REACTIONS (8)
  - ABDOMINAL PAIN [None]
  - APPARENT DEATH [None]
  - ARTHRALGIA [None]
  - ASCITES [None]
  - FATIGUE [None]
  - JOINT SWELLING [None]
  - MYALGIA [None]
  - NAUSEA [None]
